FAERS Safety Report 4783634-4 (Version None)
Quarter: 2005Q3

REPORT INFORMATION
  Report Type: 
  Country: None (occurrence: None)
  Receive Date: 20050928
  Receipt Date: 20050913
  Transmission Date: 20060218
  Serious: Yes (Hospitalization)
  Sender: FDA-Public Use
  Company Number: 2005RR-00717

PATIENT
  Age: 85 Year
  Sex: Female

DRUGS (9)
  1. CARBAMAZEPINE [Suspect]
     Indication: BIPOLAR DISORDER
  2. CLARITHROMYCIN [Suspect]
     Indication: BRONCHITIS
  3. FLUOXETINE [Suspect]
     Indication: DEPRESSION
  4. VITAMIN K ANTAGONIST [Suspect]
     Indication: HYPERTENSION
  5. BENZODIAZEPINE [Concomitant]
  6. ANGIOTENSIN CONVESION ENZYME INHIBITOR [Concomitant]
  7. DIURETIC [Concomitant]
  8. STATIN [Concomitant]
  9. NITRATE [Concomitant]

REACTIONS (9)
  - ANTIDEPRESSANT DRUG LEVEL ABOVE THERAPEUTIC [None]
  - ASTERIXIS [None]
  - CONFUSIONAL STATE [None]
  - CYTOLYTIC HEPATITIS [None]
  - DRUG INTERACTION [None]
  - ENCEPHALOPATHY [None]
  - HEPATITIS CHOLESTATIC [None]
  - INTERNATIONAL NORMALISED RATIO INCREASED [None]
  - MEDICATION ERROR [None]
